FAERS Safety Report 5091042-4 (Version None)
Quarter: 2006Q3

REPORT INFORMATION
  Report Type: 
  Country: None (occurrence: None)
  Receive Date: 20060829
  Receipt Date: 20050705
  Transmission Date: 20061208
  Serious: No
  Sender: FDA-Public Use
  Company Number: US-GLAXOSMITHKLINE-A0564968A

PATIENT
  Sex: Female

DRUGS (3)
  1. ACYCLOVIR [Suspect]
     Indication: HERPES ZOSTER
     Dosage: 800MG FIVE TIMES PER DAY
     Route: 048
     Dates: start: 20050606, end: 20050614
  2. VALTREX [Suspect]
     Indication: HERPES ZOSTER
     Dosage: 1000MG PER DAY
     Route: 048
     Dates: start: 20040101, end: 20040101
  3. NO CONCURRENT MEDICATION [Concomitant]

REACTIONS (1)
  - DRUG INEFFECTIVE [None]
